FAERS Safety Report 5144644-0 (Version None)
Quarter: 2006Q4

REPORT INFORMATION
  Report Type: 
  Country: None (occurrence: None)
  Receive Date: 20061031
  Receipt Date: 20061025
  Transmission Date: 20070319
  Serious: Yes (Other)
  Sender: FDA-Public Use
  Company Number: CO-2006-006233

PATIENT
  Age: 29 Year
  Sex: Female
  Weight: 55 kg

DRUGS (1)
  1. YASMIN [Suspect]
     Indication: ORAL CONTRACEPTION
     Dosage: 1 TAB (S), 1X/DAY, ORAL
     Route: 048
     Dates: start: 20020101, end: 20050302

REACTIONS (3)
  - ABORTION INCOMPLETE [None]
  - HYPOTHYROIDISM [None]
  - PREGNANCY [None]
